FAERS Safety Report 6919509-1 (Version None)
Quarter: 2010Q3

REPORT INFORMATION
  Report Type: 
  Country: None (occurrence: None)
  Receive Date: 20100811
  Receipt Date: 20100729
  Transmission Date: 20110219
  Serious: Yes (Other)
  Sender: FDA-Public Use
  Company Number: MX-GENENTECH-305002

PATIENT
  Age: 59 Year
  Sex: Male

DRUGS (1)
  1. LUCENTIS [Suspect]
     Indication: MACULAR DEGENERATION
     Dosage: UNK
     Route: 031
     Dates: start: 20100709

REACTIONS (4)
  - EYE INFECTION [None]
  - EYE INFLAMMATION [None]
  - EYE PAIN [None]
  - LACRIMATION INCREASED [None]
